FAERS Safety Report 8553359-8 (Version None)
Quarter: 2012Q3

REPORT INFORMATION
  Report Type: 
  Country: None (occurrence: None)
  Receive Date: 20120725
  Receipt Date: 20120725
  Transmission Date: 20120928
  Serious: Yes (Hospitalization)
  Sender: FDA-Public Use
  Company Number: None

PATIENT
  Age: 47 Year
  Sex: Female
  Weight: 97.5234 kg

DRUGS (2)
  1. TRILEPTAL [Suspect]
     Indication: BIPOLAR DISORDER
     Dosage: 300 MG TWICE A DAY PO
     Route: 048
     Dates: start: 20120323, end: 20120713
  2. TRILEPTAL [Suspect]
     Indication: AFFECTIVE DISORDER
     Dosage: 300 MG TWICE A DAY PO
     Route: 048
     Dates: start: 20120323, end: 20120713

REACTIONS (8)
  - DYSSTASIA [None]
  - MUSCULOSKELETAL PAIN [None]
  - WALKING AID USER [None]
  - PAIN [None]
  - MUSCULOSKELETAL STIFFNESS [None]
  - ARTHRALGIA [None]
  - JOINT STIFFNESS [None]
  - NECK PAIN [None]
